FAERS Safety Report 10384014 (Version 1)
Quarter: 2014Q3

REPORT INFORMATION
  Report Type: Spontaneous
  Country: SE (occurrence: SE)
  Receive Date: 20140814
  Receipt Date: 20140814
  Transmission Date: 20150326
  Serious: Yes (Hospitalization, Other)
  Sender: FDA-Public Use
  Company Number: SE-BIAL, PORTELA + CA S.A.-BIAL-02568

PATIENT
  Age: 38 Year
  Sex: Female

DRUGS (4)
  1. VIMPAT [Concomitant]
     Active Substance: LACOSAMIDE
     Route: 048
  2. ZEBINIX (ESLICARBAZEPINE ACETATE) [Suspect]
     Active Substance: ESLICARBAZEPINE ACETATE
     Indication: PARTIAL SEIZURES
     Dosage: 800 MG, 1X / DAY
     Route: 048
     Dates: start: 20140527, end: 20140711
  3. LYRICA [Concomitant]
     Active Substance: PREGABALIN
  4. ZONEGRAN [Concomitant]
     Active Substance: ZONISAMIDE
     Route: 048

REACTIONS (2)
  - Convulsion [None]
  - Anaemia megaloblastic [Recovered/Resolved]

NARRATIVE: CASE EVENT DATE: 20140708
